FAERS Safety Report 25831525 (Version 1)
Quarter: 2025Q3

REPORT INFORMATION
  Report Type: Spontaneous
  Country: US (occurrence: None)
  Receive Date: 20250921
  Receipt Date: 20250921
  Transmission Date: 20251020
  Serious: Yes (Other)
  Sender: FDA-CTU
  Company Number: None

PATIENT
  Age: 28 Year
  Sex: Female
  Weight: 54 kg

DRUGS (6)
  1. EQUATE ALLERGY RELIEF (CETIRIZINE HYDROCHLORIDE) [Suspect]
     Active Substance: CETIRIZINE HYDROCHLORIDE
     Indication: Rhinitis allergic
     Dosage: 90 TABLET(S) DAILY ORAL
     Route: 048
  2. Lessina PO QD [Concomitant]
  3. Prozac 10mg PO QD [Concomitant]
  4. Montelukast 10mg PO QD [Concomitant]
  5. Wellbutrin XR 150mg PO QD [Concomitant]
  6. Cetirizine 10mg PO QD [Concomitant]

REACTIONS (2)
  - Pruritus [None]
  - Withdrawal syndrome [None]

NARRATIVE: CASE EVENT DATE: 20250920
